FAERS Safety Report 14028955 (Version 2)
Quarter: 2017Q4

REPORT INFORMATION
  Report Type: Spontaneous
  Country: US (occurrence: US)
  Receive Date: 20170930
  Receipt Date: 20171010
  Transmission Date: 20180321
  Serious: No
  Sender: FDA-Public Use
  Company Number: US-SA-2017SA098460

PATIENT
  Sex: Female

DRUGS (11)
  1. AUBAGIO [Suspect]
     Active Substance: TERIFLUNOMIDE
     Indication: MULTIPLE SCLEROSIS
     Route: 048
  2. FLAX SEED [Concomitant]
     Active Substance: FLAX SEED
  3. ZYRTEC [Concomitant]
     Active Substance: CETIRIZINE HYDROCHLORIDE
  4. COQ10 [Concomitant]
     Active Substance: UBIDECARENONE
     Dosage: CHEWABLE TABLET
  5. SIMVASTATIN. [Concomitant]
     Active Substance: SIMVASTATIN
  6. FISH OIL [Concomitant]
     Active Substance: FISH OIL
  7. METOPROLOL SUCCINATE. [Concomitant]
     Active Substance: METOPROLOL SUCCINATE
  8. SYNTHROID [Concomitant]
     Active Substance: LEVOTHYROXINE SODIUM
  9. SINGULAIR [Concomitant]
     Active Substance: MONTELUKAST SODIUM
  10. VITAMIN B12 [Concomitant]
     Active Substance: CYANOCOBALAMIN
  11. VITAMIN D3 [Concomitant]
     Active Substance: CHOLECALCIFEROL

REACTIONS (6)
  - Flatulence [Unknown]
  - Abdominal pain upper [Unknown]
  - Abdominal discomfort [Unknown]
  - Diarrhoea [Unknown]
  - Pain [Unknown]
  - Myalgia [Unknown]
